FAERS Safety Report 4523576-2 (Version None)
Quarter: 2004Q4

REPORT INFORMATION
  Report Type: 
  Country: None (occurrence: None)
  Receive Date: 20041208
  Receipt Date: 20041130
  Transmission Date: 20050328
  Serious: Yes (Death, Hospitalization, Other)
  Sender: FDA-Public Use
  Company Number: 2004-10-0069

PATIENT
  Age: 67 Year
  Sex: Female

DRUGS (4)
  1. TEMODAR [Suspect]
     Indication: BRAIN NEOPLASM MALIGNANT
     Dosage: 115 MG QD ORAL
     Route: 048
     Dates: start: 20040602, end: 20040624
  2. LEVOXYL [Concomitant]
  3. DEXAMETHASONE [Concomitant]
  4. PROTONIX [Concomitant]

REACTIONS (8)
  - APALLIC SYNDROME [None]
  - DRUG HYPERSENSITIVITY [None]
  - HAEMOGLOBIN DECREASED [None]
  - PLATELET COUNT DECREASED [None]
  - RASH MACULO-PAPULAR [None]
  - RED BLOOD CELL COUNT DECREASED [None]
  - THERMAL BURN [None]
  - WHITE BLOOD CELL COUNT DECREASED [None]
